FAERS Safety Report 6059492-7 (Version None)
Quarter: 2009Q1

REPORT INFORMATION
  Report Type: 
  Country: None (occurrence: None)
  Receive Date: 20090130
  Receipt Date: 20090120
  Transmission Date: 20090719
  Serious: Yes (Other)
  Sender: FDA-Public Use
  Company Number: CN-PFIZER INC-2009160301

PATIENT
  Age: 80 Year
  Sex: Male

DRUGS (5)
  1. SULPERAZON [Suspect]
     Indication: BRONCHITIS
     Dosage: 4 G, 2X/DAY
     Route: 042
     Dates: start: 20031111, end: 20031117
  2. MUCOSOLVAN [Concomitant]
     Dates: start: 20080101
  3. THEOPHYLLINE [Concomitant]
     Dates: start: 20080101
  4. DIPROPHYLLINE [Concomitant]
     Dates: start: 20080101
  5. METHYLPREDNISOLONE [Concomitant]
     Dates: start: 20080101

REACTIONS (1)
  - WHITE BLOOD CELL COUNT DECREASED [None]
